FAERS Safety Report 7934488-6 (Version None)
Quarter: 2011Q4

REPORT INFORMATION
  Report Type: 
  Country: None (occurrence: None)
  Receive Date: 20111122
  Receipt Date: 20111114
  Transmission Date: 20120403
  Serious: Yes (Hospitalization)
  Sender: FDA-Public Use
  Company Number: TW-GLAXOSMITHKLINE-B0764034A

PATIENT
  Age: 46 Year
  Sex: Female

DRUGS (1)
  1. ITRACONAZOLE [Suspect]
     Indication: ONYCHOMYCOSIS
     Route: 065

REACTIONS (17)
  - ERYTHEMA MULTIFORME [None]
  - BLOOD ALBUMIN DECREASED [None]
  - DECREASED APPETITE [None]
  - PRURITUS GENERALISED [None]
  - INTERNATIONAL NORMALISED RATIO INCREASED [None]
  - IMMUNE SYSTEM DISORDER [None]
  - EPIDERMAL NECROSIS [None]
  - ASCITES [None]
  - HEPATITIS CHOLESTATIC [None]
  - HEPATIC FAILURE [None]
  - PROTHROMBIN TIME PROLONGED [None]
  - ASTHENIA [None]
  - JAUNDICE [None]
  - ALANINE AMINOTRANSFERASE INCREASED [None]
  - BLOOD BILIRUBIN INCREASED [None]
  - NAUSEA [None]
  - ASPARTATE AMINOTRANSFERASE INCREASED [None]
